FAERS Safety Report 15163921 (Version 1)
Quarter: 2018Q3

REPORT INFORMATION
  Report Type: Report from Study
  Country: ES (occurrence: ES)
  Receive Date: 20180719
  Receipt Date: 20180719
  Transmission Date: 20181010
  Serious: Yes (Hospitalization)
  Sender: FDA-Public Use
  Company Number: ES-TEVA-2018-ES-928456

PATIENT
  Age: 16 Year
  Sex: Female

DRUGS (4)
  1. URBASON 4 MG COMPRIMIDOS , 30 COMPRIMIDOS [Concomitant]
     Indication: CHRONIC GRAFT VERSUS HOST DISEASE
     Dosage: 4 MILLIGRAM DAILY;
     Route: 048
     Dates: start: 20170327, end: 20170425
  2. CICLOSPORIN (406A) [Suspect]
     Active Substance: CYCLOSPORINE
     Indication: CHRONIC GRAFT VERSUS HOST DISEASE
     Dosage: 40 MILLIGRAM DAILY;
     Route: 048
     Dates: start: 20170425, end: 20170612
  3. CICLOSPORINA (406A) [Concomitant]
     Active Substance: CYCLOSPORINE
     Indication: CHRONIC GRAFT VERSUS HOST DISEASE
     Dosage: 60 MILLIGRAM DAILY;
     Route: 048
     Dates: start: 20170327, end: 20170425
  4. URBASON 4 MG COMPRIMIDOS , 30 COMPRIMIDOS [Suspect]
     Active Substance: METHYLPREDNISOLONE
     Indication: CHRONIC GRAFT VERSUS HOST DISEASE
     Dosage: 2 MILLIGRAM DAILY;
     Route: 048
     Dates: start: 20170425, end: 20170612

REACTIONS (2)
  - Acute graft versus host disease in skin [Recovered/Resolved]
  - Mixed liver injury [Recovered/Resolved]

NARRATIVE: CASE EVENT DATE: 20170523
